FAERS Safety Report 23563629 (Version 1)
Quarter: 2024Q1

REPORT INFORMATION
  Report Type: Report from Study
  Country: NL (occurrence: NL)
  Receive Date: 20240226
  Receipt Date: 20240226
  Transmission Date: 20240410
  Serious: Yes (Hospitalization)
  Sender: FDA-Public Use
  Company Number: NL-ABBVIE-5651791

PATIENT
  Sex: Female

DRUGS (12)
  1. HUMIRA [Suspect]
     Active Substance: ADALIMUMAB
     Indication: Crohn^s disease
     Route: 058
     Dates: start: 202009
  2. RISANKIZUMAB [Suspect]
     Active Substance: RISANKIZUMAB
     Indication: Crohn^s disease
     Route: 058
     Dates: start: 202308
  3. STELARA [Concomitant]
     Active Substance: USTEKINUMAB
     Indication: Crohn^s disease
     Dosage: START DUE TO SECONDARY FAILURE TO ANTI-TNF
     Dates: start: 201902, end: 20200907
  4. INFLIXIMAB [Concomitant]
     Active Substance: INFLIXIMAB
     Indication: Crohn^s disease
     Dates: start: 201704
  5. PREDNISONE [Concomitant]
     Active Substance: PREDNISONE
     Indication: Crohn^s disease
     Dosage: 60 MILLIGRAM
     Dates: start: 202010, end: 202012
  6. PREDNISONE [Concomitant]
     Active Substance: PREDNISONE
     Indication: Crohn^s disease
     Dosage: LAST ADMIN DATE:2020
     Dates: start: 202007
  7. PREDNISONE [Concomitant]
     Active Substance: PREDNISONE
     Indication: Crohn^s disease
     Dosage: DOSAGE INCREASED TO 60 MG/DAY
     Route: 042
     Dates: start: 202103, end: 202106
  8. PREDNISONE [Concomitant]
     Active Substance: PREDNISONE
     Indication: Crohn^s disease
     Route: 048
     Dates: start: 2023
  9. PREDNISONE [Concomitant]
     Active Substance: PREDNISONE
     Indication: Crohn^s disease
     Dosage: UNSPECIFIED START DATE
     Dates: end: 20210205
  10. VEDOLIZUMAB [Suspect]
     Active Substance: VEDOLIZUMAB
     Indication: Crohn^s disease
     Dosage: INTERVAL SHORTENING
     Route: 065
     Dates: start: 202109
  11. VEDOLIZUMAB [Suspect]
     Active Substance: VEDOLIZUMAB
     Indication: Crohn^s disease
     Dosage: LAST ADMIN DATE:2021
     Route: 065
     Dates: start: 20210313
  12. ENTOCORT [Concomitant]
     Active Substance: BUDESONIDE
     Indication: Crohn^s disease
     Dosage: START DUE TO STELARA^S INSUFFICIENCY
     Dates: start: 202006

REACTIONS (14)
  - Colitis [Unknown]
  - Unevaluable event [Unknown]
  - Unevaluable event [Unknown]
  - Faecal calprotectin increased [Unknown]
  - Crohn^s disease [Unknown]
  - Aeromonas infection [Unknown]
  - Adverse drug reaction [Unknown]
  - Unevaluable event [Unknown]
  - Unevaluable event [Unknown]
  - Campylobacter infection [Unknown]
  - Therapeutic product effect incomplete [Unknown]
  - Abdominal pain [Unknown]
  - Drug intolerance [Unknown]
  - Drug ineffective [Unknown]

NARRATIVE: CASE EVENT DATE: 20201001
